FAERS Safety Report 11335396 (Version 1)
Quarter: 2015Q3

REPORT INFORMATION
  Report Type: Spontaneous
  Country: US (occurrence: None)
  Receive Date: 20150731
  Receipt Date: 20150731
  Transmission Date: 20151125
  Serious: No
  Sender: FDA-Public Use
  Company Number: None

PATIENT
  Sex: Male

DRUGS (3)
  1. DETROL LA GENERIC 4 MG [Suspect]
     Active Substance: TOLTERODINE TARTRATE
     Indication: URETHRAL VALVES
     Route: 048
     Dates: start: 200911
  2. DETROL LA GENERIC 4 MG [Suspect]
     Active Substance: TOLTERODINE TARTRATE
     Indication: URINARY INCONTINENCE
     Route: 048
     Dates: start: 200911
  3. DETROL LA GENERIC 4 MG [Suspect]
     Active Substance: TOLTERODINE TARTRATE
     Indication: URETHRAL ATRESIA
     Route: 048
     Dates: start: 200911

REACTIONS (4)
  - Somnambulism [None]
  - Dizziness [None]
  - Palpitations [None]
  - Product substitution issue [None]
